FAERS Safety Report 11697943 (Version 3)
Quarter: 2016Q2

REPORT INFORMATION
  Report Type: Spontaneous
  Country: US (occurrence: US)
  Receive Date: 20151104
  Receipt Date: 20160628
  Transmission Date: 20160815
  Serious: Yes (Hospitalization)
  Sender: FDA-Public Use
  Company Number: US-PFIZER INC-2014034815

PATIENT
  Age: 89 Year
  Sex: Female

DRUGS (25)
  1. MEGESTROL ACETATE. [Concomitant]
     Active Substance: MEGESTROL ACETATE
     Dosage: 20 MG, 2X/DAY
     Route: 048
  2. SILVADENE [Concomitant]
     Active Substance: SILVER SULFADIAZINE
     Dosage: 1 DF 1X/DAY (1%, 1 APPLICATION TO AFFECTED AREA)
     Route: 061
  3. COLACE [Concomitant]
     Active Substance: DOCUSATE SODIUM
     Dosage: UNK
     Route: 048
  4. MAGNESIUM OXIDE. [Concomitant]
     Active Substance: MAGNESIUM OXIDE
     Dosage: 400 MG, 1X/DAY
     Route: 048
  5. FENTANYL. [Concomitant]
     Active Substance: FENTANYL
     Dosage: 25 MCG/HR PATCH ,1 PATCH TO SKIN TRANSDERMAL Q72H
     Route: 062
  6. BETAMETHASONE VALERATE. [Concomitant]
     Active Substance: BETAMETHASONE VALERATE
     Dosage: 0.1 %, UNK
     Route: 061
  7. CELEBREX [Suspect]
     Active Substance: CELECOXIB
     Indication: ARTHRALGIA
     Dosage: 200 MG, 2X/DAY
     Route: 048
  8. XANAX [Suspect]
     Active Substance: ALPRAZOLAM
     Dosage: 0.25 MG, AS NEEDED (QD PRN)
     Route: 048
  9. LASIX [Concomitant]
     Active Substance: FUROSEMIDE
     Dosage: 20 MG, AS NEEDED (ONCE A DAY)
     Route: 048
  10. GRALISE [Concomitant]
     Active Substance: GABAPENTIN
     Dosage: 600 MG, 1X/DAY (1 TABLET WITH EVENING MEAL ONE TIME)
     Route: 048
  11. AMITIZA [Concomitant]
     Active Substance: LUBIPROSTONE
     Dosage: 24 UG, 2X/DAY (WITH FOOD)
     Route: 048
  12. REQUIP [Concomitant]
     Active Substance: ROPINIROLE HYDROCHLORIDE
     Dosage: 5 MG, DAILY (QHS)
     Route: 048
  13. POLYETHYLENE GLYCOL 3350. [Concomitant]
     Active Substance: POLYETHYLENE GLYCOL 3350
     Dosage: 2 SCOOPS EVERY MORNING
     Route: 048
  14. LOTRISONE [Concomitant]
     Active Substance: BETAMETHASONE DIPROPIONATE\CLOTRIMAZOLE
     Dosage: 2 DF, 2X/DAY (BETAMETHASONE DIPROPIONATE: 0.05%, CLOTRIMAZOLE:1%)
     Route: 061
  15. OXYCODONE [Concomitant]
     Active Substance: OXYCODONE
     Dosage: 15 MG, 2X/DAY
     Route: 048
  16. ROPINIROLE HCL [Concomitant]
     Active Substance: ROPINIROLE HYDROCHLORIDE
     Dosage: 5 MG, 1X/DAY AT BEDTIME
  17. PERCOCET [Concomitant]
     Active Substance: ACETAMINOPHEN\OXYCODONE HYDROCHLORIDE
     Dosage: 1 DF, AS NEEDED AS NEEDED ( OXYCODONE HYDROCHLORIDE: 5MG , PARACETAMOL: 325 MG) EVERY 6 HRS
     Route: 048
  18. DEXILANT [Concomitant]
     Active Substance: DEXLANSOPRAZOLE
     Dosage: 60 MG, 1X/DAY
     Route: 048
  19. RANITIDINE HCL [Concomitant]
     Active Substance: RANITIDINE HYDROCHLORIDE
     Dosage: 150 MG, 2X/DAY
     Route: 048
  20. LEVOTHYROXINE SODIUM. [Concomitant]
     Active Substance: LEVOTHYROXINE SODIUM
     Dosage: 125 UG, 1X/DAY
     Route: 048
  21. METOPROLOL TARTRATE. [Concomitant]
     Active Substance: METOPROLOL TARTRATE
     Dosage: 12.5MG, DAILY (25 MG 1/2 ORALLY QHS)
     Route: 048
  22. CYMBALTA [Concomitant]
     Active Substance: DULOXETINE HYDROCHLORIDE
     Dosage: 60 UG, 1X/DAY
     Route: 048
  23. ASPIRIN. [Concomitant]
     Active Substance: ASPIRIN
     Dosage: 81 MG, ALTERNATE DAY (QOD)
     Route: 048
  24. CELEBREX [Suspect]
     Active Substance: CELECOXIB
     Indication: ARTHRITIS
     Dosage: 200 MG, 1X/DAY
     Route: 048
  25. RECLAST [Concomitant]
     Active Substance: ZOLEDRONIC ACID
     Dosage: 5 MG/100 ML
     Route: 042

REACTIONS (2)
  - Back pain [Recovering/Resolving]
  - Arthralgia [Recovering/Resolving]
